FAERS Safety Report 9515785 (Version 1)
Quarter: 2013Q1

REPORT INFORMATION
  Report Type: Spontaneous
  Country: US (occurrence: None)
  Receive Date: 20130305
  Receipt Date: 20130305
  Transmission Date: 20140127
  Serious: Yes (Other)
  Sender: FDA-Public Use
  Company Number: 163-21880-12120876

PATIENT
  Age: 61 Year
  Sex: Female
  Weight: 61.2 kg

DRUGS (29)
  1. REVLIMID (LENALIDOMIDE) (25 MILLIGRAM, CAPSULES) [Suspect]
     Indication: PLASMA CELL MYELOMA
     Dosage: 1 IN 1 D
     Route: 048
     Dates: start: 201103
  2. PREDNISONE (PREDNISONE) [Concomitant]
  3. DEXAMETHASONE (DEXAMETHASONE) [Concomitant]
  4. METHADONE (METHADONE) [Concomitant]
  5. ERYTHROMYCIN (ERYTHROMYCIN) [Concomitant]
  6. POTASSIUM CHLORIDE (POTASSIUM CHLORIDE) [Concomitant]
  7. CARVEDILOL (CARVEDILOL) [Concomitant]
  8. GABAPENTIN (GABAPENTIN) [Concomitant]
  9. METOCLOPRAMIDE (METOCLOPRAMIDE) [Concomitant]
  10. AUGMENTIN (CLAVULIN) [Concomitant]
  11. LORAZEPAM (LORAZEPAM) [Concomitant]
  12. ONDANSETRON [Concomitant]
  13. LANSOPRAZOLE [Concomitant]
  14. ACYCLOVIR [Concomitant]
  15. PROCHLORPERAZINE [Concomitant]
  16. FLUDROCORTISONE [Concomitant]
  17. LISINOPRIL [Concomitant]
  18. CIPROFLOXACIN [Concomitant]
  19. FLUCONAZOLE [Concomitant]
  20. BACTRIM DS (BACTRIM) [Concomitant]
  21. HALOPERIDOL [Concomitant]
  22. AMITRIPTYLINE [Concomitant]
  23. HYDROCODONE-ACETAMINOPHEN (VICODIN) [Concomitant]
  24. DRONABINOL [Concomitant]
  25. LOPERAMIDE [Concomitant]
  26. DAPSONE [Concomitant]
  27. MAGNESIUM [Concomitant]
  28. OXYCODONE [Concomitant]
  29. NEUPOGEN (FILGRASTIM) [Concomitant]

REACTIONS (1)
  - Pancytopenia [None]
